FAERS Safety Report 7689238-8 (Version None)
Quarter: 2011Q3

REPORT INFORMATION
  Report Type: 
  Country: None (occurrence: None)
  Receive Date: 20110817
  Receipt Date: 20110808
  Transmission Date: 20111222
  Serious: Yes (Hospitalization)
  Sender: FDA-Public Use
  Company Number: US-PURDUE-USA-2011-0073194

PATIENT
  Age: 40 Year
  Sex: Female

DRUGS (4)
  1. DRONABINOL [Suspect]
     Indication: DECREASED APPETITE
  2. DILAUDID [Suspect]
     Indication: BREAKTHROUGH PAIN
  3. OXYCONTIN [Suspect]
     Indication: PRODUCT USED FOR UNKNOWN INDICATION
     Dosage: 30 MG, TID
  4. IXABEPILONE [Suspect]
     Indication: CERVIX CARCINOMA
     Dosage: 42 MG, UNK
     Route: 042
     Dates: start: 20110602

REACTIONS (3)
  - ILEUS [None]
  - NAUSEA [None]
  - VOMITING [None]
